FAERS Safety Report 9791452 (Version 2)
Quarter: 2014Q1

REPORT INFORMATION
  Report Type: Report from Study
  Country: BR (occurrence: BR)
  Receive Date: 20140101
  Receipt Date: 20140227
  Transmission Date: 20141002
  Serious: Yes (Hospitalization, Other)
  Sender: FDA-Public Use
  Company Number: PHHY2013BR150836

PATIENT
  Age: 69 Year
  Sex: Female
  Weight: 52 kg

DRUGS (10)
  1. DIOVAN [Suspect]
     Indication: HYPERTENSION
     Dosage: 1 DF (320 MG), DAILY
     Dates: end: 201205
  2. DIOVAN [Suspect]
     Dosage: 1 DF (160MG), DAILY
     Dates: start: 201205
  3. SELOZOK [Suspect]
     Dosage: 25 MG, UNK
     Dates: start: 201206
  4. SELOZOK [Suspect]
     Dosage: 2 DF (25 MG), DAILY
  5. SELOZOK [Suspect]
     Dosage: 25 MG, UNK
  6. GLIFAGE [Concomitant]
     Indication: BLOOD GLUCOSE ABNORMAL
     Dosage: 1 DF ( 500 MG), DAILY
     Route: 048
     Dates: start: 201206
  7. GLIFAGE [Concomitant]
     Indication: DIABETES MELLITUS
  8. AMLODIPINE [Concomitant]
     Indication: BLOOD PRESSURE ABNORMAL
     Dosage: 1 DF (2.5 MG), DAILY
     Route: 048
  9. ROSUVASTATIN CALCIUM [Concomitant]
     Dosage: 10 MG, UNK
  10. CRESTOR [Concomitant]
     Indication: BLOOD CHOLESTEROL ABNORMAL
     Dosage: 1 DF (10 MG), DAILY
     Route: 048

REACTIONS (9)
  - Coronary artery aneurysm [Recovered/Resolved]
  - Urinary tract infection [Recovered/Resolved]
  - Nervousness [Recovered/Resolved]
  - Weight decreased [Recovering/Resolving]
  - Pain [Recovered/Resolved]
  - Mydriasis [Unknown]
  - Sensation of heaviness [Recovered/Resolved]
  - Arthralgia [Recovered/Resolved]
  - Fatigue [Recovered/Resolved]
